FAERS Safety Report 5142280-3 (Version None)
Quarter: 2006Q4

REPORT INFORMATION
  Report Type: 
  Country: None (occurrence: None)
  Receive Date: 20061102
  Receipt Date: 20060921
  Transmission Date: 20070319
  Serious: Yes (Other)
  Sender: FDA-Public Use
  Company Number: PHBS2006BE14620

PATIENT
  Age: 72 Year
  Sex: Male

DRUGS (6)
  1. LUCRIN [Concomitant]
     Route: 065
     Dates: start: 19930101
  2. MITOXANTRONE [Concomitant]
     Route: 065
     Dates: start: 20040601, end: 20041201
  3. ETOPOSIDE [Concomitant]
     Route: 065
     Dates: start: 20050301, end: 20050601
  4. TAXOTERE [Concomitant]
     Route: 065
     Dates: start: 20050601
  5. ZOMETA [Suspect]
     Indication: PROSTATE CANCER
     Dosage: UNK, UNK
     Route: 065
     Dates: start: 20040622
  6. HORMONES [Concomitant]

REACTIONS (3)
  - OPEN WOUND [None]
  - OSTEONECROSIS [None]
  - PAIN IN JAW [None]
